FAERS Safety Report 10701704 (Version 1)
Quarter: 2015Q1

REPORT INFORMATION
  Report Type: Spontaneous
  Country: FR (occurrence: FR)
  Receive Date: 20150109
  Receipt Date: 20150109
  Transmission Date: 20150721
  Serious: Yes (Hospitalization, Other)
  Sender: FDA-Public Use
  Company Number: FR-PFIZER INC-2015004010

PATIENT
  Age: 1 Day
  Sex: Male
  Weight: 3 kg

DRUGS (13)
  1. EFFEXOR LP [Suspect]
     Active Substance: VENLAFAXINE HYDROCHLORIDE
     Dosage: 75 MG, 3X/DAY
     Route: 064
     Dates: start: 20141201, end: 20141213
  2. NORSET [Suspect]
     Active Substance: MIRTAZAPINE
     Dosage: UNK (BEGINNING OF PREGNANCY)
     Route: 064
  3. CLAMOXYL [Concomitant]
     Active Substance: AMOXICILLIN\CLAVULANIC ACID
  4. NORSET [Suspect]
     Active Substance: MIRTAZAPINE
     Dosage: 15 MG, 3X/DAY
     Route: 064
     Dates: start: 20141010, end: 20141102
  5. ATARAX [Suspect]
     Active Substance: HYDROXYZINE\HYDROXYZINE HYDROCHLORIDE
     Dosage: 50 MG, 2X/DAY
     Route: 064
     Dates: start: 20141220, end: 20141220
  6. TARDYFERON [Concomitant]
     Active Substance: FERROUS SULFATE\FOLIC ACID
     Dosage: UNK (DURING THE THIRD TRIMESTER)
  7. UVEDOSE [Concomitant]
     Active Substance: CHOLECALCIFEROL
     Dosage: UNK (DURING THE THIRD TRIMESTER)
  8. NORSET [Suspect]
     Active Substance: MIRTAZAPINE
     Dosage: 15 MG, 1X/DAY
     Route: 064
     Dates: start: 20141103, end: 20141221
  9. EFFEXOR LP [Suspect]
     Active Substance: VENLAFAXINE HYDROCHLORIDE
     Dosage: 75 MG, 4X/DAY
     Route: 064
     Dates: start: 20141103, end: 20141130
  10. FOLIC ACID. [Concomitant]
     Active Substance: FOLIC ACID
  11. EFFEXOR LP [Suspect]
     Active Substance: VENLAFAXINE HYDROCHLORIDE
     Dosage: 75 MG, UNK
     Route: 064
  12. EFFEXOR LP [Suspect]
     Active Substance: VENLAFAXINE HYDROCHLORIDE
     Dosage: 375 MG, DAILY (75 MG 5 TIMES PER DAY)
     Route: 064
     Dates: start: 20141010, end: 20141102
  13. EFFEXOR LP [Suspect]
     Active Substance: VENLAFAXINE HYDROCHLORIDE
     Dosage: 75 MG, 2X/DAY
     Route: 064
     Dates: start: 20141214, end: 20141221

REACTIONS (12)
  - Acidosis [Unknown]
  - Amniotic cavity infection [Unknown]
  - Poor sucking reflex [Recovering/Resolving]
  - Decreased activity [Unknown]
  - Drug withdrawal syndrome neonatal [Unknown]
  - Respiratory distress [Recovered/Resolved]
  - Agitation [Recovered/Resolved]
  - Premature baby [Unknown]
  - Hypotonia [Recovered/Resolved]
  - Bradycardia foetal [Unknown]
  - Maternal exposure during pregnancy [Unknown]
  - Apparent death [Unknown]

NARRATIVE: CASE EVENT DATE: 20141221
